FAERS Safety Report 6183201-4 (Version None)
Quarter: 2009Q2

REPORT INFORMATION
  Report Type: 
  Country: None (occurrence: None)
  Receive Date: 20090507
  Receipt Date: 20090427
  Transmission Date: 20091009
  Serious: Yes (Hospitalization)
  Sender: FDA-Public Use
  Company Number: IE-MEDIMMUNE-MEDI-0008317

PATIENT
  Sex: Male

DRUGS (2)
  1. SYNAGIS [Suspect]
     Dates: start: 20081009, end: 20090306
  2. SYNAGIS [Suspect]

REACTIONS (8)
  - BRONCHIOLITIS [None]
  - COUGH [None]
  - INCREASED UPPER AIRWAY SECRETION [None]
  - PYREXIA [None]
  - RHINORRHOEA [None]
  - RHONCHI [None]
  - VOMITING [None]
  - WHEEZING [None]
